FAERS Safety Report 16024565 (Version 1)
Quarter: 2019Q1

REPORT INFORMATION
  Report Type: Spontaneous
  Country: IT (occurrence: IT)
  Receive Date: 20190301
  Receipt Date: 20190301
  Transmission Date: 20190418
  Serious: Yes (Death, Other)
  Sender: FDA-Public Use
  Company Number: IT-BIOGEN-2019BI00703181

PATIENT
  Sex: Male

DRUGS (1)
  1. SPINRAZA [Suspect]
     Active Substance: NUSINERSEN
     Indication: SPINAL MUSCULAR ATROPHY
     Dosage: LOADING DOSES ON 31 AUG 2018, 13 SEP 2018, 27 SEP 2018, AND 31 OCT 2018
     Route: 065
     Dates: start: 20180831, end: 20181031

REACTIONS (2)
  - Acute respiratory failure [Fatal]
  - Spinal muscular atrophy [Unknown]
